FAERS Safety Report 5633497-X (Version None)
Quarter: 2008Q1

REPORT INFORMATION
  Report Type: 
  Country: None (occurrence: None)
  Receive Date: 20080221
  Receipt Date: 20080212
  Transmission Date: 20080703
  Serious: Yes (Hospitalization)
  Sender: FDA-Public Use
  Company Number: JP-PFIZER INC-2008011884

PATIENT
  Sex: Female
  Weight: 9.4 kg

DRUGS (7)
  1. ZITHROMAX [Suspect]
     Indication: UPPER RESPIRATORY TRACT INFLAMMATION
     Route: 048
  2. EXPECTORANTS [Concomitant]
  3. ANTIHISTAMINES [Concomitant]
  4. ASVERIN [Concomitant]
     Route: 048
     Dates: start: 20071201, end: 20071203
  5. PERIACTIN [Concomitant]
     Route: 048
     Dates: start: 20071201, end: 20071203
  6. MUCOSOLVAN [Concomitant]
     Route: 048
     Dates: start: 20071201, end: 20071203
  7. MEPTIN [Concomitant]
     Route: 048

REACTIONS (1)
  - RHABDOMYOLYSIS [None]
